FAERS Safety Report 16655694 (Version 3)
Quarter: 2025Q3

REPORT INFORMATION
  Report Type: Spontaneous
  Country: EU (occurrence: EU)
  Receive Date: 20190801
  Receipt Date: 20250820
  Transmission Date: 20251021
  Serious: Yes (Hospitalization, Other)
  Sender: AUROBINDO
  Company Number: EU-AUROBINDO-AUR-APL-2019-044250

PATIENT
  Age: 47 Year
  Sex: Female

DRUGS (3)
  1. ACETAMINOPHEN [Suspect]
     Active Substance: ACETAMINOPHEN
     Indication: Pyrexia
     Dosage: 1000 MILLIGRAM(1000 MG, Q6H)
     Route: 065
  2. SIMVASTATIN [Suspect]
     Active Substance: SIMVASTATIN
     Indication: Hypercholesterolaemia
     Route: 065
  3. LEVOFLOXACIN [Concomitant]
     Active Substance: LEVOFLOXACIN
     Indication: Pneumonia legionella
     Dosage: 500 MILLIGRAM, ONCE A DAY
     Route: 048

REACTIONS (9)
  - Hyperhidrosis [Unknown]
  - Weight increased [Unknown]
  - Respiratory alkalosis [Unknown]
  - Hypoxia [Unknown]
  - Neutrophilia [Recovering/Resolving]
  - Pneumonia legionella [Recovered/Resolved]
  - Fatigue [Recovering/Resolving]
  - Leukocytosis [Unknown]
  - Hyponatraemia [Recovering/Resolving]

NARRATIVE: CASE EVENT DATE: 20141110
